FAERS Safety Report 4530319-5 (Version None)
Quarter: 2004Q4

REPORT INFORMATION
  Report Type: 
  Country: None (occurrence: None)
  Receive Date: 20041217
  Receipt Date: 20041210
  Transmission Date: 20050328
  Serious: Yes (Hospitalization)
  Sender: FDA-Public Use
  Company Number: ES-ROCHE-388844

PATIENT
  Age: 37 Year
  Sex: Male
  Weight: 54 kg

DRUGS (8)
  1. DACLIZUMAB [Suspect]
     Dosage: FOR 4 DOSES.
     Route: 042
     Dates: start: 20041122
  2. DACLIZUMAB [Suspect]
     Dosage: 24 HOURS PRE-TRANSPLANT.
     Route: 042
     Dates: start: 20041108, end: 20041108
  3. MYCOPHENOLATE MOFETIL [Suspect]
     Route: 048
     Dates: start: 20041108
  4. CYCLOSPORINE [Suspect]
     Route: 048
     Dates: start: 20041121
  5. PREDNISONE [Suspect]
     Route: 048
     Dates: start: 20041109
  6. RANITIDINA [Concomitant]
     Dosage: 22-24 NOV 2004: 150 MG BID.
     Route: 048
     Dates: start: 20041122
  7. AMLODIPINO [Concomitant]
     Route: 048
     Dates: start: 20041115
  8. CARVEDILOL [Concomitant]
     Route: 048
     Dates: start: 20041114

REACTIONS (1)
  - UPPER RESPIRATORY TRACT INFECTION [None]
